FAERS Safety Report 6243231-0 (Version None)
Quarter: 2009Q2

REPORT INFORMATION
  Report Type: 
  Country: None (occurrence: None)
  Receive Date: 20090622
  Receipt Date: 20090605
  Transmission Date: 20091009
  Serious: Yes (Life-Threatening, Hospitalization)
  Sender: FDA-Public Use
  Company Number: B0573269A

PATIENT
  Age: 35 Year
  Sex: Female

DRUGS (14)
  1. ONDANSETRON HYDROCHLORIDE [Suspect]
     Dosage: 4 MG / INTRAVENOUS
     Route: 042
  2. COCAINE (FORMULATION UNKNOWN) (GENERIC) (COCAINE) [Suspect]
     Dosage: 250 MG / TOPICAL
     Route: 061
  3. LIGNOCAINE HYDROCHLORIDE (FORMULATION UNKNOWN) (GENERIC) (LIGNOCAINE H [Suspect]
     Indication: ANAESTHESIA
     Dosage: 5 ML / INTRANASAL
     Route: 045
  4. EPINEPHRINE [Suspect]
     Dosage: 5 ML / INTRANASAL
     Route: 045
  5. SEVOFLURANE [Suspect]
  6. AMIODARONE HCL [Suspect]
     Indication: HYPOTENSION
     Dosage: 300 MG /
  7. EPINEPHRINE [Suspect]
     Dosage: 60 MCG /
  8. FENTANYL-100 [Concomitant]
  9. PROPOFOL [Concomitant]
  10. NITROUS OXIDE [Concomitant]
  11. DICLOFENAC [Concomitant]
  12. SEVOFLURANE [Concomitant]
  13. SODIUM BICARBONATE [Concomitant]
  14. ATROPINE [Concomitant]

REACTIONS (7)
  - APNOEA [None]
  - BRADYCARDIA [None]
  - CARDIAC ARREST [None]
  - HYPOTENSION [None]
  - LONG QT SYNDROME [None]
  - VENTRICULAR FIBRILLATION [None]
  - VENTRICULAR TACHYCARDIA [None]
